FAERS Safety Report 5813810-0 (Version None)
Quarter: 2008Q3

REPORT INFORMATION
  Report Type: 
  Country: None (occurrence: None)
  Receive Date: 20080714
  Receipt Date: 20070525
  Transmission Date: 20090109
  Serious: Yes (Death)
  Sender: FDA-Public Use
  Company Number: 2007029364

PATIENT
  Sex: Female

DRUGS (1)
  1. ZYRTEC [Suspect]

REACTIONS (1)
  - ACUTE LYMPHOCYTIC LEUKAEMIA [None]
